FAERS Safety Report 7884876-1 (Version None)
Quarter: 2011Q4

REPORT INFORMATION
  Report Type: 
  Country: None (occurrence: None)
  Receive Date: 20111102
  Receipt Date: 20111028
  Transmission Date: 20120403
  Serious: Yes (Death)
  Sender: FDA-Public Use
  Company Number: PHHY2011JP93216

PATIENT

DRUGS (2)
  1. NEORAL [Suspect]
     Indication: CORD BLOOD TRANSPLANT THERAPY
  2. MYCOPHENOLATE MOFETIL [Concomitant]
     Indication: GRAFT VERSUS HOST DISEASE
     Dosage: UNK

REACTIONS (1)
  - SEPSIS [None]
